FAERS Safety Report 6477570-5 (Version None)
Quarter: 2009Q4

REPORT INFORMATION
  Report Type: 
  Country: None (occurrence: None)
  Receive Date: 20091207
  Receipt Date: 20091106
  Transmission Date: 20100525
  Serious: No
  Sender: FDA-Public Use
  Company Number: US-BAYER-200939090NA

PATIENT
  Sex: Female

DRUGS (1)
  1. DROSPIRENONE AND EHTINYL ESTRADIOL [Suspect]
     Indication: DRUG USE FOR UNKNOWN INDICATION

REACTIONS (4)
  - ABDOMINAL PAIN LOWER [None]
  - ACNE [None]
  - LOSS OF LIBIDO [None]
  - WEIGHT INCREASED [None]
